FAERS Safety Report 8343649-6 (Version None)
Quarter: 2012Q2

REPORT INFORMATION
  Report Type: 
  Country: None (occurrence: None)
  Receive Date: 20120508
  Receipt Date: 20100722
  Transmission Date: 20120825
  Serious: Yes (Hospitalization)
  Sender: FDA-Public Use
  Company Number: US-TEVA-2010003893

PATIENT
  Sex: Female
  Weight: 82.174 kg

DRUGS (3)
  1. TREANDA [Suspect]
     Indication: LYMPHOCYTIC LEUKAEMIA
     Route: 042
     Dates: start: 20100623, end: 20100624
  2. RITUXAN [Concomitant]
     Indication: LYMPHOCYTIC LEUKAEMIA
     Dates: start: 20100622, end: 20100622
  3. TREANDA [Suspect]
     Route: 042
     Dates: start: 20100721

REACTIONS (2)
  - SEPTIC SHOCK [None]
  - MALAISE [None]
